FAERS Safety Report 10757947 (Version 1)
Quarter: 2015Q1

REPORT INFORMATION
  Report Type: Spontaneous
  Country: US (occurrence: None)
  Receive Date: 20150202
  Receipt Date: 20150202
  Transmission Date: 20150721
  Serious: Yes (Other)
  Sender: FDA-Public Use
  Company Number: None

PATIENT
  Age: 76 Year
  Sex: Male
  Weight: 72.58 kg

DRUGS (14)
  1. VITAMIN E [Concomitant]
     Active Substance: .ALPHA.-TOCOPHEROL
  2. NEXIUM [Suspect]
     Active Substance: ESOMEPRAZOLE MAGNESIUM
     Indication: DYSPEPSIA
     Dosage: 40MG, I WAS TOLD TO TAKE IT TWICE A DAY BUT I TOOK IT ONCE, TWICE DAILY BUT I TOOK IT ONCE DAILY, BY MOUTH
     Route: 048
     Dates: start: 20141203, end: 20150106
  3. AMLODIPINE [Concomitant]
     Active Substance: AMLODIPINE BESYLATE
  4. CRESTOR [Concomitant]
     Active Substance: ROSUVASTATIN CALCIUM
  5. JALYN [Concomitant]
     Active Substance: DUTASTERIDE\TAMSULOSIN HYDROCHLORIDE
  6. D VITMAIN [Concomitant]
  7. GERITOL [Concomitant]
     Active Substance: MINERALS\VITAMINS
  8. FISH OIL [Concomitant]
     Active Substance: FISH OIL
  9. VITAMIN B12 [Concomitant]
     Active Substance: CYANOCOBALAMIN
  10. ATENOLOL. [Concomitant]
     Active Substance: ATENOLOL
  11. RAMIPARIC [Concomitant]
  12. PANTOPRAZOLE [Concomitant]
     Active Substance: PANTOPRAZOLE SODIUM
  13. OSTEOBY-FLEX ??? [Concomitant]
  14. RED YEAST RICE [Concomitant]
     Active Substance: DIETARY SUPPLEMENT

REACTIONS (7)
  - Diarrhoea [None]
  - Dyspareunia [None]
  - Urine flow decreased [None]
  - Myalgia [None]
  - Dysuria [None]
  - Penile pain [None]
  - Inappropriate schedule of drug administration [None]

NARRATIVE: CASE EVENT DATE: 201412
